FAERS Safety Report 5294380-5 (Version None)
Quarter: 2007Q2

REPORT INFORMATION
  Report Type: 
  Country: None (occurrence: None)
  Receive Date: 20070409
  Receipt Date: 20070409
  Transmission Date: 20071010
  Serious: Yes (Other)
  Sender: FDA-Public Use
  Company Number: None

PATIENT
  Age: 30 Year
  Sex: Female
  Weight: 81.6475 kg

DRUGS (3)
  1. AVELOX [Suspect]
     Indication: UPPER RESPIRATORY TRACT INFECTION
     Dosage: PO
     Route: 048
     Dates: start: 20061201, end: 20061211
  2. SINGULAIR [Concomitant]
  3. ADVIL [Concomitant]

REACTIONS (3)
  - HYPOAESTHESIA [None]
  - INFLAMMATION [None]
  - TENDONITIS [None]
